FAERS Safety Report 9984344 (Version 1)
Quarter: 2014Q1

REPORT INFORMATION
  Report Type: Report from Study
  Country: US (occurrence: US)
  Receive Date: 20140307
  Receipt Date: 20140307
  Transmission Date: 20141002
  Serious: No
  Sender: FDA-Public Use
  Company Number: US-ABBVIE-13P-163-1182853-00

PATIENT
  Age: 18 Year
  Sex: Female

DRUGS (6)
  1. HUMIRA [Suspect]
     Indication: CROHN^S DISEASE
     Dates: start: 20130923, end: 20131202
  2. IMURAN [Concomitant]
     Indication: CROHN^S DISEASE
  3. HYOSCYAMINE [Concomitant]
     Indication: ABDOMINAL PAIN UPPER
     Dosage: EVERY FOUR HOURS
  4. IMODIUM [Concomitant]
     Indication: DIARRHOEA
  5. DICYCLOMINE [Concomitant]
     Indication: ABDOMINAL PAIN UPPER
  6. STEROID ANTIBACTERIALS [Concomitant]
     Indication: PRODUCT USED FOR UNKNOWN INDICATION

REACTIONS (8)
  - Vitamin D decreased [Recovering/Resolving]
  - Night sweats [Recovering/Resolving]
  - Myalgia [Recovering/Resolving]
  - Arthralgia [Recovering/Resolving]
  - Arthralgia [Recovering/Resolving]
  - Pyrexia [Recovering/Resolving]
  - Blood iron decreased [Recovering/Resolving]
  - Full blood count decreased [Recovering/Resolving]
